FAERS Safety Report 13869539 (Version 1)
Quarter: 2017Q3

REPORT INFORMATION
  Report Type: Spontaneous
  Country: US (occurrence: US)
  Receive Date: 20170815
  Receipt Date: 20170815
  Transmission Date: 20171127
  Serious: Yes (Other)
  Sender: FDA-Public Use
  Company Number: US-REGENERON PHARMACEUTICALS, INC.-2017-19961

PATIENT

DRUGS (2)
  1. EYLEA [Suspect]
     Active Substance: AFLIBERCEPT
     Dosage: 2 MG, ONLY RIGHT EYE (OD), EVERY 8 TO 9 WEEKS, LAST DOSE
     Route: 031
     Dates: start: 20170719, end: 20170719
  2. EYLEA [Suspect]
     Active Substance: AFLIBERCEPT
     Indication: DIABETIC RETINAL OEDEMA
     Dosage: 2 MG, BOTH EYES (OU), EVERY 8 TO 9 WEEKS
     Route: 031
     Dates: start: 201610

REACTIONS (3)
  - Aqueous humour leakage [Recovering/Resolving]
  - Drug dose omission [Not Recovered/Not Resolved]
  - Corneal perforation [Recovering/Resolving]

NARRATIVE: CASE EVENT DATE: 20170719
